FAERS Safety Report 5275084-1 (Version None)
Quarter: 2007Q1

REPORT INFORMATION
  Report Type: 
  Country: None (occurrence: None)
  Receive Date: 20070326
  Receipt Date: 20070315
  Transmission Date: 20070707
  Serious: Yes (Hospitalization)
  Sender: FDA-Public Use
  Company Number: DE-JNJFOC-20070303632

PATIENT
  Sex: Female

DRUGS (1)
  1. TAVANIC [Suspect]
     Indication: NASOPHARYNGITIS
     Route: 048

REACTIONS (3)
  - BLOOD PRESSURE DECREASED [None]
  - ELECTROCARDIOGRAM CHANGE [None]
  - TACHYCARDIA [None]
